FAERS Safety Report 7922782-4 (Version None)
Quarter: 2011Q4

REPORT INFORMATION
  Report Type: 
  Country: None (occurrence: None)
  Receive Date: 20111117
  Receipt Date: 20110830
  Transmission Date: 20120403
  Serious: No
  Sender: FDA-Public Use
  Company Number: US-ALLERGAN-1111630US

PATIENT
  Age: 78 Year
  Sex: Female

DRUGS (3)
  1. LUMIGAN [Concomitant]
     Dosage: UNK
     Route: 047
  2. COSOPT [Concomitant]
     Dosage: UNK
  3. COMBIGAN [Suspect]
     Indication: PRODUCT USED FOR UNKNOWN INDICATION
     Dosage: 1 GTT, BID
     Route: 047
     Dates: start: 20090101, end: 20110601

REACTIONS (1)
  - OCULAR HYPERAEMIA [None]
